FAERS Safety Report 17493041 (Version 2)
Quarter: 2020Q2

REPORT INFORMATION
  Report Type: Spontaneous
  Country: DK (occurrence: DK)
  Receive Date: 20200303
  Receipt Date: 20200424
  Transmission Date: 20200713
  Serious: Yes (Other)
  Sender: FDA-Public Use
  Company Number: DK-BAYER-2020-035252

PATIENT
  Age: 15 Year
  Sex: Male

DRUGS (1)
  1. JIVI [Suspect]
     Active Substance: DAMOCTOCOG ALFA PEGOL
     Indication: FACTOR VIII DEFICIENCY
     Dosage: TOTAL OF 4 DOSES
     Dates: end: 20200208

REACTIONS (11)
  - Ocular hyperaemia [Unknown]
  - Rash erythematous [Unknown]
  - Mydriasis [Unknown]
  - Drug hypersensitivity [Unknown]
  - Malaise [Unknown]
  - Swelling face [Unknown]
  - Presyncope [Unknown]
  - Feeling hot [Unknown]
  - Panic reaction [Unknown]
  - Feeling abnormal [Unknown]
  - Nausea [Unknown]

NARRATIVE: CASE EVENT DATE: 20200208
